FAERS Safety Report 21824274 (Version 1)
Quarter: 2023Q1

REPORT INFORMATION
  Report Type: Report from Study
  Country: US (occurrence: US)
  Receive Date: 20230105
  Receipt Date: 20230105
  Transmission Date: 20230418
  Serious: No
  Sender: FDA-Public Use
  Company Number: US-ABBVIE-4217885

PATIENT
  Sex: Male

DRUGS (1)
  1. RINVOQ [Suspect]
     Active Substance: UPADACITINIB
     Indication: Product used for unknown indication
     Route: 048

REACTIONS (7)
  - Nausea [Recovering/Resolving]
  - Weight decreased [Unknown]
  - Abdominal discomfort [Unknown]
  - Headache [Unknown]
  - Vision blurred [Unknown]
  - Feeding disorder [Unknown]
  - Constipation [Recovering/Resolving]
